FAERS Safety Report 10009628 (Version 2)
Quarter: 2014Q1

REPORT INFORMATION
  Report Type: Spontaneous
  Country: US (occurrence: US)
  Receive Date: 20140312
  Receipt Date: 20140312
  Transmission Date: 20141002
  Serious: No
  Sender: FDA-Public Use
  Company Number: US-INCYTE CORPORATION-2012IN001577

PATIENT
  Age: 59 Year
  Sex: Female
  Weight: 84.81 kg

DRUGS (6)
  1. JAKAFI [Suspect]
     Indication: MYELOFIBROSIS
     Dosage: 10 MG, BID
     Route: 048
     Dates: start: 2012
  2. LEVOTHYROXINE SODIUM [Concomitant]
     Dosage: 0.88 MG, QD
  3. CARVEDILOL [Concomitant]
     Dosage: 12.5 MG, BID
  4. ANAGRELIDE [Concomitant]
     Dosage: 1 MG, QD
  5. ASPIRIN [Concomitant]
     Dosage: 81 MG, QD
  6. MULTIVITAMIN [Concomitant]

REACTIONS (3)
  - Fatigue [Unknown]
  - Weight increased [Unknown]
  - Haemoglobin decreased [Unknown]
